FAERS Safety Report 12737515 (Version 1)
Quarter: 2016Q3

REPORT INFORMATION
  Report Type: Spontaneous
  Country: US (occurrence: US)
  Receive Date: 20160912
  Receipt Date: 20160912
  Transmission Date: 20161109
  Serious: No
  Sender: FDA-Public Use
  Company Number: US-IMPAX LABORATORIES, INC-2016-IPXL-00252

PATIENT
  Sex: Female

DRUGS (1)
  1. URSODIOL CAPSULES 300MG [Suspect]
     Active Substance: URSODIOL
     Indication: PRODUCT USED FOR UNKNOWN INDICATION
     Dosage: UNK UNK, 4 /DAY
     Route: 065

REACTIONS (1)
  - Off label use [Unknown]
